FAERS Safety Report 4414240-9 (Version None)
Quarter: 2004Q2

REPORT INFORMATION
  Report Type: 
  Country: None (occurrence: None)
  Receive Date: 20040630
  Receipt Date: 20040526
  Transmission Date: 20050107
  Serious: No
  Sender: FDA-Public Use
  Company Number: 04P-163-0262162-00

PATIENT
  Age: 76 Year
  Sex: Female
  Weight: 47.1741 kg

DRUGS (13)
  1. HUMIRA [Suspect]
     Indication: RHEUMATOID ARTHRITIS
     Dosage: 40 MG, 1 IN 2 WK, SUBCUTANEOUS
     Route: 058
     Dates: start: 20040211
  2. METHOTREXATE SODIUM [Concomitant]
  3. CELECOXIB [Concomitant]
  4. AMITRIPTYLINE HCL [Concomitant]
  5. FORTAO [Concomitant]
  6. ATENOLOL [Concomitant]
  7. PENDEL [Concomitant]
  8. PREDNISONE TAB [Concomitant]
  9. FOLIC ACID [Concomitant]
  10. MULTIVITAMIN [Concomitant]
  11. CALCIUM [Concomitant]
  12. CALCITRIOL [Concomitant]
  13. METHOCARBAMOL [Concomitant]

REACTIONS (1)
  - DRUG INEFFECTIVE [None]
